FAERS Safety Report 14101552 (Version 1)
Quarter: 2017Q4

REPORT INFORMATION
  Report Type: Report from Study
  Country: US (occurrence: US)
  Receive Date: 20171018
  Receipt Date: 20171018
  Transmission Date: 20180321
  Serious: Yes (Other)
  Sender: FDA-Public Use
  Company Number: US-SHIRE-US201720837

PATIENT
  Sex: Female

DRUGS (1)
  1. LIALDA [Suspect]
     Active Substance: MESALAMINE
     Indication: PRODUCT USED FOR UNKNOWN INDICATION
     Dosage: UNK
     Route: 065

REACTIONS (4)
  - Micturition urgency [Not Recovered/Not Resolved]
  - Haemorrhage [Not Recovered/Not Resolved]
  - Discomfort [Not Recovered/Not Resolved]
  - Inappropriate schedule of drug administration [Unknown]
